FAERS Safety Report 8996992 (Version 1)
Quarter: 2013Q1

REPORT INFORMATION
  Report Type: Spontaneous
  Country: US (occurrence: None)
  Receive Date: 20130102
  Receipt Date: 20130102
  Transmission Date: 20140127
  Serious: Yes (Hospitalization)
  Sender: FDA-Public Use
  Company Number: None

PATIENT
  Age: 11 Year
  Sex: Male
  Weight: 35 kg

DRUGS (2)
  1. XYNTHA [Suspect]
     Route: 040
     Dates: start: 20120814, end: 20121228
  2. XYNTHA [Suspect]
     Dates: start: 20120814, end: 20121228

REACTIONS (1)
  - Mesenteric vein thrombosis [None]
